FAERS Safety Report 5210736-0 (Version None)
Quarter: 2007Q1

REPORT INFORMATION
  Report Type: 
  Country: None (occurrence: None)
  Receive Date: 20070117
  Receipt Date: 20070111
  Transmission Date: 20070707
  Serious: Yes (Hospitalization)
  Sender: FDA-Public Use
  Company Number: DK-SANOFI-SYNTHELABO-A01200700342

PATIENT
  Age: 55 Year
  Sex: Female

DRUGS (3)
  1. FOLIC ACID [Suspect]
     Route: 042
     Dates: start: 20070108
  2. FLUOROURACIL [Suspect]
     Route: 042
     Dates: start: 20070108, end: 20070109
  3. ELOXATIN [Suspect]
     Indication: COLORECTAL CANCER
     Route: 042
     Dates: start: 20070108, end: 20070108

REACTIONS (1)
  - ATRIAL FIBRILLATION [None]
